FAERS Safety Report 5001354-8 (Version None)
Quarter: 2006Q2

REPORT INFORMATION
  Report Type: 
  Country: None (occurrence: None)
  Receive Date: 20060512
  Receipt Date: 20060224
  Transmission Date: 20061013
  Serious: Yes (Hospitalization)
  Sender: FDA-Public Use
  Company Number: US-MERCK-0602USA05609

PATIENT
  Age: 69 Year
  Sex: Female
  Weight: 91 kg

DRUGS (2)
  1. VIOXX [Suspect]
     Indication: RHEUMATOID ARTHRITIS
     Route: 048
     Dates: start: 19960101, end: 20040901
  2. VIOXX [Suspect]
     Indication: OSTEOARTHRITIS
     Route: 048
     Dates: start: 19960101, end: 20040901

REACTIONS (7)
  - ANXIETY [None]
  - CARDIAC DISORDER [None]
  - CEREBROVASCULAR ACCIDENT [None]
  - CONDITION AGGRAVATED [None]
  - GENERAL PHYSICAL HEALTH DETERIORATION [None]
  - HYPERTENSION [None]
  - PAIN [None]
